FAERS Safety Report 10971080 (Version 1)
Quarter: 2015Q1

REPORT INFORMATION
  Report Type: Spontaneous
  Country: US (occurrence: US)
  Receive Date: 20150331
  Receipt Date: 20150331
  Transmission Date: 20150721
  Serious: No
  Sender: FDA-Public Use
  Company Number: US-009507513-1503USA011530

PATIENT
  Age: 7 Year
  Sex: Male

DRUGS (2)
  1. ZOCOR [Suspect]
     Active Substance: SIMVASTATIN
     Indication: DYSLIPIDAEMIA
  2. ZOCOR [Suspect]
     Active Substance: SIMVASTATIN
     Indication: GLYCOGEN STORAGE DISORDER
     Route: 048

REACTIONS (1)
  - Drug ineffective [Unknown]
